FAERS Safety Report 8825228 (Version 2)
Quarter: 2015Q2

REPORT INFORMATION
  Report Type: Report from Study
  Country: US (occurrence: US)
  Receive Date: 20121004
  Receipt Date: 20150415
  Transmission Date: 20150821
  Serious: Yes (Death, Hospitalization)
  Sender: FDA-Public Use
  Company Number: US-ROCHE-1134527

PATIENT
  Sex: Male

DRUGS (25)
  1. NEUPOGEN [Concomitant]
     Active Substance: FILGRASTIM
     Route: 065
  2. PROCRIT [Concomitant]
     Active Substance: ERYTHROPOIETIN
     Route: 065
  3. DEXAMETHASONE. [Concomitant]
     Active Substance: DEXAMETHASONE
     Route: 042
  4. PEPCID [Concomitant]
     Active Substance: FAMOTIDINE
  5. NORVASC [Concomitant]
     Active Substance: AMLODIPINE BESYLATE
  6. RITUXAN [Suspect]
     Active Substance: RITUXIMAB
     Indication: NON-HODGKIN^S LYMPHOMA
     Route: 042
     Dates: start: 20030210
  7. DOXORUBICIN [Concomitant]
     Active Substance: DOXORUBICIN
  8. PREDNISOLONE. [Concomitant]
     Active Substance: PREDNISOLONE
  9. XYLOCAINE [Concomitant]
     Active Substance: LIDOCAINE HYDROCHLORIDE
  10. EPINEPHRINE. [Concomitant]
     Active Substance: EPINEPHRINE
  11. CYCLOPHOSPHAMIDE. [Concomitant]
     Active Substance: CYCLOPHOSPHAMIDE
     Route: 042
  12. LESCOL [Concomitant]
     Active Substance: FLUVASTATIN SODIUM
  13. DEXAMETHASONE. [Concomitant]
     Active Substance: DEXAMETHASONE
     Route: 042
  14. BENADRYL [Concomitant]
     Active Substance: DIPHENHYDRAMINE HYDROCHLORIDE
  15. VINCRISTINE [Concomitant]
     Active Substance: VINCRISTINE
  16. CIPROFLOXACIN. [Concomitant]
     Active Substance: CIPROFLOXACIN
     Route: 065
  17. ISORDIL [Concomitant]
     Active Substance: ISOSORBIDE DINITRATE
  18. TYLENOL [Concomitant]
     Active Substance: ACETAMINOPHEN
     Route: 048
  19. ZOFRAN [Concomitant]
     Active Substance: ONDANSETRON HYDROCHLORIDE
  20. VASOTEC [Concomitant]
     Active Substance: ENALAPRIL MALEATE
  21. LASIX [Concomitant]
     Active Substance: FUROSEMIDE
  22. K-DUR [Concomitant]
     Active Substance: POTASSIUM CHLORIDE
  23. ALLOPURINOL. [Concomitant]
     Active Substance: ALLOPURINOL
     Route: 065
  24. ASPIRIN. [Concomitant]
     Active Substance: ASPIRIN
  25. ATIVAN [Concomitant]
     Active Substance: LORAZEPAM

REACTIONS (9)
  - Malaise [Unknown]
  - Diarrhoea [Unknown]
  - Body temperature increased [Unknown]
  - Cardiac failure congestive [Recovering/Resolving]
  - Dyspnoea [Unknown]
  - Death [Fatal]
  - Salmonella sepsis [Unknown]
  - Oedema peripheral [Recovered/Resolved]
  - Fatigue [Unknown]
